FAERS Safety Report 9513426 (Version 1)
Quarter: 2013Q3

REPORT INFORMATION
  Report Type: Spontaneous
  Country: US (occurrence: US)
  Receive Date: 20130910
  Receipt Date: 20130910
  Transmission Date: 20140515
  Serious: No
  Sender: FDA-Public Use
  Company Number: US-TARO-2012P1060723

PATIENT
  Age: 92 Year
  Sex: Female
  Weight: 77.11 kg

DRUGS (3)
  1. WARFARIN SODIUM TABLETS USP 1MG [Suspect]
     Route: 048
     Dates: start: 20121002, end: 20121003
  2. WARFARIN SODIUM TABLETS USP 1MG [Suspect]
     Route: 048
     Dates: start: 20121002, end: 20121002
  3. BENICAR [Concomitant]

REACTIONS (2)
  - Abdominal pain upper [Not Recovered/Not Resolved]
  - Decreased appetite [Unknown]
